FAERS Safety Report 9361519 (Version 2)
Quarter: 2013Q2

REPORT INFORMATION
  Report Type: Report from Study
  Country: UA (occurrence: UA)
  Receive Date: 20130621
  Receipt Date: 20130621
  Transmission Date: 20140414
  Serious: Yes (Hospitalization)
  Sender: FDA-Public Use
  Company Number: UA-PFIZER INC-2011279388

PATIENT
  Age: 64 Year
  Sex: Female
  Weight: 93 kg

DRUGS (5)
  1. TOFACITINIB CITRATE [Suspect]
     Indication: RHEUMATOID ARTHRITIS
     Dosage: 5 MG, 2X/DAY
     Route: 048
     Dates: start: 20100902, end: 20120820
  2. PLACEBO [Suspect]
     Indication: RHEUMATOID ARTHRITIS
     Dosage: 0MG WEEKLY
     Route: 048
     Dates: start: 20100902, end: 20120820
  3. METHYLPREDNISOLONE [Concomitant]
     Indication: RHEUMATOID ARTHRITIS
     Dosage: 4 MG, 1X/DAY
     Route: 048
     Dates: start: 20110301, end: 20111112
  4. ATORVASTATIN [Concomitant]
     Indication: ANGINA PECTORIS
     Dosage: 20 MG, 1X/DAY
     Route: 048
     Dates: start: 20101214
  5. ATORVASTATIN [Concomitant]
     Indication: DYSLIPIDAEMIA

REACTIONS (4)
  - Erysipelas [Recovered/Resolved]
  - Local swelling [None]
  - Cyanosis [None]
  - Thrombosis [None]
